FAERS Safety Report 9993684 (Version 2)
Quarter: 2014Q1

REPORT INFORMATION
  Report Type: Report from Study
  Country: JP (occurrence: JP)
  Receive Date: 20140310
  Receipt Date: 20140310
  Transmission Date: 20141002
  Serious: Yes (Hospitalization)
  Sender: FDA-Public Use
  Company Number: JP-B.I. PHARMACEUTICALS,INC./RIDGEFIELD-2014-BI-06104BI

PATIENT
  Age: 58 Year
  Sex: Male
  Weight: 76.3 kg

DRUGS (10)
  1. TELMISARTAN + HYDROCHLOROTHIAZIDE [Suspect]
     Indication: HYPERTENSION
     Dosage: DOSE PER APPLICATION AND DAILY DOSE: T80/A5/H12.5 (MG)
     Route: 048
     Dates: start: 20140108
  2. AMLODIPINE [Suspect]
     Indication: HYPERTENSION
     Route: 065
     Dates: start: 20140108
  3. SOLDEM 3A [Concomitant]
     Dosage: 500 ML
     Route: 042
  4. SOLDEM 1 [Concomitant]
     Dosage: 500 ML
     Route: 042
  5. SOLDEM 6 [Concomitant]
     Indication: ARTERIAL CATHETERISATION
     Dosage: 200 ML
     Route: 042
     Dates: start: 20140120, end: 20140121
  6. HEPAFLUSH 100 UNITS [Concomitant]
     Dosage: 1000 U
     Route: 042
  7. BUSCOPAN INJECTION 20 MG [Concomitant]
     Dosage: 20 MG
     Route: 042
     Dates: start: 20140121, end: 20140121
  8. OPYSTAN INJECTION 35 MG [Concomitant]
     Dosage: 35 MG
     Route: 042
     Dates: start: 20140121, end: 20140121
  9. XYLOCAINE JELLY 2% [Concomitant]
     Dosage: 5 ML
     Dates: start: 20140121, end: 20140121
  10. LECICARBON [Concomitant]
     Indication: ILL-DEFINED DISORDER
     Dosage: ROUTE: INTRARECTAL; TOTAL DAILY DOSE: 1T
     Dates: start: 20140121, end: 20140121

REACTIONS (1)
  - Large intestine polyp [Recovered/Resolved]
